FAERS Safety Report 4355852-0 (Version None)
Quarter: 2004Q2

REPORT INFORMATION
  Report Type: 
  Country: None (occurrence: None)
  Receive Date: 20040507
  Receipt Date: 20040507
  Transmission Date: 20050107
  Serious: Yes (Life-Threatening)
  Sender: FDA-Public Use
  Company Number: None

PATIENT
  Age: 57 Year
  Sex: Male
  Weight: 68.0396 kg

DRUGS (10)
  1. NAMENDA [Suspect]
     Indication: COGNITIVE DISORDER
  2. ZYPREXA [Concomitant]
  3. ATIVAN [Concomitant]
  4. FLUOXETINE [Concomitant]
  5. SERZONE [Concomitant]
  6. CYLERT [Concomitant]
  7. PREVACID [Concomitant]
  8. HALDOL [Concomitant]
  9. ARTANE [Concomitant]
  10. LUVOX [Concomitant]

REACTIONS (3)
  - CONDITION AGGRAVATED [None]
  - HOMICIDAL IDEATION [None]
  - SUICIDAL IDEATION [None]
